APPROVED DRUG PRODUCT: NASONEX 24HR ALLERGY
Active Ingredient: MOMETASONE FUROATE
Strength: 0.05MG/SPRAY
Dosage Form/Route: SPRAY, METERED;NASAL
Application: N215712 | Product #001
Applicant: PERRIGO PHARMA INTERNATIONAL DAC
Approved: Mar 17, 2022 | RLD: Yes | RS: Yes | Type: OTC